FAERS Safety Report 10639087 (Version 2)
Quarter: 2016Q3

REPORT INFORMATION
  Report Type: Spontaneous
  Country: US (occurrence: US)
  Receive Date: 20141208
  Receipt Date: 20160725
  Transmission Date: 20161109
  Serious: Yes (Hospitalization, Other)
  Sender: FDA-Public Use
  Company Number: US-PFIZER INC-2014330962

PATIENT
  Age: 51 Year
  Sex: Female
  Weight: 62 kg

DRUGS (15)
  1. LEVOTHYROXINE. [Concomitant]
     Active Substance: LEVOTHYROXINE
     Indication: AUTOIMMUNE THYROIDITIS
     Dosage: 100 ?G, 1X/DAY
     Route: 048
  2. BENADRYL [Concomitant]
     Active Substance: DIPHENHYDRAMINE HYDROCHLORIDE
     Indication: SWELLING
  3. LYRICA [Suspect]
     Active Substance: PREGABALIN
     Indication: FIBROMYALGIA
     Dosage: 150 MG, 2X/DAY
     Route: 048
  4. VITAMIN D [Concomitant]
     Active Substance: CHOLECALCIFEROL
     Dosage: 50000 IU, WEEKLY
  5. LORAZEPAM. [Concomitant]
     Active Substance: LORAZEPAM
     Indication: CHEST PAIN
     Dosage: 0.5 MG,  1-2 AS NEEDED
     Route: 048
  6. WELCHOL [Concomitant]
     Active Substance: COLESEVELAM HYDROCHLORIDE
     Indication: BLOOD CHOLESTEROL ABNORMAL
     Dosage: 625 MG, 6 A DAY
     Route: 048
  7. VITAMIN B12 [Concomitant]
     Active Substance: CYANOCOBALAMIN
     Indication: PERNICIOUS ANAEMIA
     Dosage: UNK, MONTHLY
  8. BENADRYL [Concomitant]
     Active Substance: DIPHENHYDRAMINE HYDROCHLORIDE
     Indication: AUTOIMMUNE DISORDER
  9. HYDROCODONE [Concomitant]
     Active Substance: HYDROCODONE
     Indication: CERVICAL SPINAL STENOSIS
  10. LYRICA [Suspect]
     Active Substance: PREGABALIN
     Indication: PAIN
     Dosage: 100 MG, 2X/DAY
  11. CLONAZEPAM. [Concomitant]
     Active Substance: CLONAZEPAM
     Indication: SEIZURE
     Dosage: 0.5 MG, 2X/DAY
     Route: 048
  12. HYDROCODONE [Concomitant]
     Active Substance: HYDROCODONE
     Indication: SPINAL FUSION SURGERY
     Dosage: 10-325 MG, 1-4 A DAY, USUALLY ABOUT 2
     Route: 048
  13. LYRICA [Suspect]
     Active Substance: PREGABALIN
     Indication: TRIGEMINAL NEURALGIA
     Dosage: 50 MG, 2X/DAY
     Route: 048
     Dates: end: 201411
  14. BENADRYL [Concomitant]
     Active Substance: DIPHENHYDRAMINE HYDROCHLORIDE
     Indication: HYPERSENSITIVITY
     Dosage: 50 MG, 2X/DAY
  15. LISINOPRIL. [Concomitant]
     Active Substance: LISINOPRIL
     Indication: BLOOD PRESSURE ABNORMAL
     Dosage: 10 MG, 1X/DAY
     Route: 048

REACTIONS (12)
  - Intervertebral disc disorder [Unknown]
  - Vitamin B12 deficiency [Unknown]
  - Hypertension [Not Recovered/Not Resolved]
  - Pancreatitis chronic [Unknown]
  - Pernicious anaemia [Not Recovered/Not Resolved]
  - Thyroid disorder [Unknown]
  - Osteoporosis [Not Recovered/Not Resolved]
  - Dyspnoea [Unknown]
  - Electrocardiogram abnormal [Unknown]
  - Trigeminal neuralgia [Not Recovered/Not Resolved]
  - Cholecystitis [Unknown]
  - Weight decreased [Unknown]

NARRATIVE: CASE EVENT DATE: 200904
